FAERS Safety Report 5721497-0 (Version None)
Quarter: 2008Q2

REPORT INFORMATION
  Report Type: 
  Country: None (occurrence: None)
  Receive Date: 20080428
  Receipt Date: 20080428
  Transmission Date: 20081010
  Serious: Yes (Hospitalization, Other)
  Sender: FDA-Public Use
  Company Number: None

PATIENT
  Sex: Female
  Weight: 76.6 kg

DRUGS (2)
  1. TIAGABINE HCL [Suspect]
     Indication: MIGRAINE
     Dosage: 8MG BID AND 16MG QHS PO
     Route: 048
     Dates: start: 20080426, end: 20080426
  2. TIZANIDINE HCL [Suspect]
     Dosage: 8MG BID AND 16 MG QHS PO
     Route: 048

REACTIONS (5)
  - CONFUSIONAL STATE [None]
  - DEPRESSED LEVEL OF CONSCIOUSNESS [None]
  - DRUG PRESCRIBING ERROR [None]
  - MEDICATION ERROR [None]
  - WRONG DRUG ADMINISTERED [None]
